FAERS Safety Report 8121175-7 (Version None)
Quarter: 2012Q1

REPORT INFORMATION
  Report Type: 
  Country: None (occurrence: None)
  Receive Date: 20120208
  Receipt Date: 20120131
  Transmission Date: 20120608
  Serious: Yes (Other)
  Sender: FDA-Public Use
  Company Number: US-BAYER-2012-009548

PATIENT
  Age: 63 Year
  Sex: Male

DRUGS (16)
  1. CYCLOSPORINE [Concomitant]
     Indication: IMMUNOSUPPRESSANT DRUG THERAPY
     Dosage: (TARGET TROUGH LEVEL, 100-150 NG/ML
  2. EZETIMIBE [Concomitant]
     Dosage: DAILY DOSE 10 MG
  3. CIPROFLOXACIN HCL [Suspect]
     Indication: BRONCHIECTASIS
     Dosage: 500 MG, BID
     Dates: start: 20100101, end: 20100101
  4. CIPROFLOXACIN HCL [Suspect]
     Dosage: UNK
     Dates: start: 20110401, end: 20110526
  5. AZATHIOPRINE [Concomitant]
     Indication: IMMUNOSUPPRESSANT DRUG THERAPY
     Dosage: DAILY DOSE 100 MG
  6. CEFEPIME [Concomitant]
     Indication: BRONCHITIS
     Dosage: 2 G, BID
     Route: 042
     Dates: start: 20110502, end: 20110526
  7. SULFAMETHOXAZOLE + TRIMETHOPRIM [Concomitant]
  8. METOPROLOL [Concomitant]
  9. CIPROFLOXACIN HCL [Suspect]
     Indication: PSEUDOMONAS TEST POSITIVE
     Dosage: UNK
     Dates: start: 20110301
  10. CEFTAZIDIME [Concomitant]
     Indication: BRONCHITIS
     Dosage: UNK
     Dates: start: 20110301
  11. IPRATROPIUM BROMIDE [Concomitant]
     Route: 055
  12. UNKNOWN DRUG [Concomitant]
     Route: 055
  13. CIPROFLOXACIN HCL [Suspect]
     Indication: BRONCHITIS
     Dosage: 500 MG, BID
     Dates: start: 20100901
  14. PREDNISONE [Concomitant]
     Indication: IMMUNOSUPPRESSANT DRUG THERAPY
     Dosage: DAILY DOSE 5 MG
  15. ITRACONAZOLE [Concomitant]
  16. OMEPRAZOLE [Concomitant]

REACTIONS (10)
  - RHABDOMYOLYSIS [None]
  - MYALGIA [None]
  - VOMITING [None]
  - ARTHRALGIA [None]
  - MUSCULAR WEAKNESS [None]
  - RENAL FAILURE ACUTE [None]
  - HYPERKALAEMIA [None]
  - ASTHENIA [None]
  - FATIGUE [None]
  - NAUSEA [None]
